FAERS Safety Report 7209128-4 (Version None)
Quarter: 2011Q1

REPORT INFORMATION
  Report Type: 
  Country: None (occurrence: None)
  Receive Date: 20110103
  Receipt Date: 20110103
  Transmission Date: 20110831
  Serious: Yes (Other)
  Sender: FDA-Public Use
  Company Number: None

PATIENT
  Sex: Female

DRUGS (2)
  1. ANASTROZOLE [Suspect]
     Dosage: 1 MG ONCE A DAY P.O.
     Route: 048
     Dates: start: 20101006
  2. ARIMIDEX [Suspect]

REACTIONS (3)
  - FEELING ABNORMAL [None]
  - HEADACHE [None]
  - BREAST TENDERNESS [None]
